FAERS Safety Report 18248367 (Version 2)
Quarter: 2020Q3

REPORT INFORMATION
  Report Type: Report from Study
  Country: DE (occurrence: DE)
  Receive Date: 20200909
  Receipt Date: 20200916
  Transmission Date: 20201103
  Serious: Yes (Hospitalization)
  Sender: FDA-Public Use
  Company Number: NVSC2020DE209013

PATIENT
  Sex: Female
  Weight: 98 kg

DRUGS (4)
  1. CYCLOSPORIN [Concomitant]
     Active Substance: CYCLOSPORINE
     Indication: PRODUCT USED FOR UNKNOWN INDICATION
     Dosage: 75 MG
     Route: 048
     Dates: start: 20200303
  2. PLACEBO [Suspect]
     Active Substance: UNSPECIFIED INGREDIENT
     Indication: APLASTIC ANAEMIA
     Dosage: 150 MG
     Route: 048
     Dates: start: 20200303, end: 20200715
  3. BLINDED NO TREATMENT RECEIVED [Suspect]
     Active Substance: INVESTIGATIONAL PRODUCT
     Indication: APLASTIC ANAEMIA
     Dosage: 150 MG
     Route: 048
     Dates: start: 20200303, end: 20200715
  4. BLINDED ELTROMBOPAG [Suspect]
     Active Substance: ELTROMBOPAG
     Indication: APLASTIC ANAEMIA
     Dosage: 150 MG
     Route: 048
     Dates: start: 20200303, end: 20200715

REACTIONS (2)
  - Subcutaneous haematoma [Recovered/Resolved]
  - Cerebral venous sinus thrombosis [Recovered/Resolved]

NARRATIVE: CASE EVENT DATE: 20200715
